FAERS Safety Report 24160642 (Version 1)
Quarter: 2024Q3

REPORT INFORMATION
  Report Type: Spontaneous
  Country: NL (occurrence: NL)
  Receive Date: 20240801
  Receipt Date: 20240801
  Transmission Date: 20241016
  Serious: Yes (Other)
  Sender: ALKEM
  Company Number: NL-ALKEM LABORATORIES LIMITED-NL-ALKEM-2024-12609

PATIENT
  Age: 57 Year
  Sex: Female

DRUGS (1)
  1. ITRACONAZOLE [Suspect]
     Active Substance: ITRACONAZOLE
     Indication: Fungal foot infection
     Dosage: 100 MILLIGRAM, BID, (EVERY 12 HOUR)
     Route: 065

REACTIONS (1)
  - Hepatotoxicity [Unknown]
